FAERS Safety Report 8503526-4 (Version None)
Quarter: 2012Q3

REPORT INFORMATION
  Report Type: 
  Country: None (occurrence: None)
  Receive Date: 20120711
  Receipt Date: 20120706
  Transmission Date: 20120928
  Serious: No
  Sender: FDA-Public Use
  Company Number: US-PFIZER INC-2012150291

PATIENT
  Sex: Male
  Weight: 58 kg

DRUGS (1)
  1. PROTONIX [Suspect]
     Indication: NAUSEA
     Dosage: 40 MG, 1X/DAY
     Route: 048
     Dates: start: 20120220, end: 20120220

REACTIONS (3)
  - NAUSEA [None]
  - DRUG INEFFECTIVE [None]
  - MALAISE [None]
